FAERS Safety Report 7450854-X (Version None)
Quarter: 2011Q2

REPORT INFORMATION
  Report Type: 
  Country: None (occurrence: None)
  Receive Date: 20110502
  Receipt Date: 20110422
  Transmission Date: 20111010
  Serious: Yes (Death)
  Sender: FDA-Public Use
  Company Number: JP-CELGENEUS-087-21880-11040163

PATIENT
  Sex: Female

DRUGS (3)
  1. DEXAMETHASONE [Concomitant]
     Indication: MULTIPLE MYELOMA
     Dosage: 39.6 MILLIGRAM
     Route: 041
     Dates: start: 20110312, end: 20110319
  2. REVLIMID [Suspect]
     Indication: MULTIPLE MYELOMA
     Dosage: 25 MILLIGRAM
     Route: 048
     Dates: start: 20110312, end: 20110324
  3. ACTONEL [Concomitant]
     Indication: ILL-DEFINED DISORDER
     Dosage: 2.5 MILLIGRAM
     Route: 048
     Dates: start: 20110312, end: 20110319

REACTIONS (2)
  - SEPSIS [None]
  - NEUTROPENIA [None]
